FAERS Safety Report 16201026 (Version 7)
Quarter: 2025Q4

REPORT INFORMATION
  Report Type: Spontaneous
  Country: EU (occurrence: EU)
  Receive Date: 20190416
  Receipt Date: 20251023
  Transmission Date: 20260118
  Serious: Yes (Other)
  Sender: SANOFI AVENTIS
  Company Number: EU-MLMSERVICE-20190409-1702088-1

PATIENT
  Age: 55 Year
  Sex: Female

DRUGS (4)
  1. DOCETAXEL [Suspect]
     Active Substance: DOCETAXEL
     Indication: Invasive breast carcinoma
     Dosage: 75 MG/M2, Q3W (6 AT REGIMEN 75 MG/M2, EVERY 3 WEEKS)
  2. DOXORUBICIN [Suspect]
     Active Substance: DOXORUBICIN
     Indication: Invasive breast carcinoma
     Dosage: 50 MG/M2, Q3W (6 AT REGIMEN)
  3. DOXORUBICIN [Suspect]
     Active Substance: DOXORUBICIN
     Indication: Metastases to skin
     Dosage: 60 MG/M2, Q3W
  4. LETROZOLE [Suspect]
     Active Substance: LETROZOLE
     Indication: Invasive breast carcinoma
     Dosage: UNK

REACTIONS (4)
  - Deep vein thrombosis [Unknown]
  - Post thrombotic syndrome [Unknown]
  - Metastases to skin [Unknown]
  - Lymphoedema [Recovering/Resolving]
